FAERS Safety Report 6899799-4 (Version None)
Quarter: 2010Q3

REPORT INFORMATION
  Report Type: 
  Country: None (occurrence: None)
  Receive Date: 20100708
  Receipt Date: 20090715
  Transmission Date: 20110219
  Serious: Yes (Other)
  Sender: FDA-Public Use
  Company Number: 2009225386

PATIENT
  Age: 34 Year
  Sex: Female
  Weight: 82.1 kg

DRUGS (3)
  1. CHANTIX [Suspect]
     Indication: SMOKING CESSATION THERAPY
     Dosage: 0.5 MG, ORAL
     Route: 048
     Dates: start: 20090523, end: 20090601
  2. ATENOLOL [Concomitant]
  3. PROZAC [Concomitant]

REACTIONS (5)
  - FEELING ABNORMAL [None]
  - MOOD ALTERED [None]
  - NAUSEA [None]
  - SUICIDAL IDEATION [None]
  - TOBACCO USER [None]
